FAERS Safety Report 4609655-X (Version None)
Quarter: 2005Q1

REPORT INFORMATION
  Report Type: 
  Country: None (occurrence: None)
  Receive Date: 20050314
  Receipt Date: 20050314
  Transmission Date: 20050727
  Serious: No
  Sender: FDA-Public Use
  Company Number: None

PATIENT
  Age: 8 Year
  Sex: Male
  Weight: 27.2158 kg

DRUGS (2)
  1. STRATTERA [Suspect]
     Indication: ATTENTION DEFICIT/HYPERACTIVITY DISORDER
     Dosage: SEE IMAGE
  2. . [Concomitant]

REACTIONS (19)
  - ABDOMINAL PAIN UPPER [None]
  - ABNORMAL BEHAVIOUR [None]
  - AGGRESSION [None]
  - ANGER [None]
  - BIPOLAR DISORDER [None]
  - CRYING [None]
  - DEPRESSION [None]
  - DIARRHOEA [None]
  - EMOTIONAL DISORDER [None]
  - HYPERAESTHESIA [None]
  - LETHARGY [None]
  - MOOD SWINGS [None]
  - NEGATIVISM [None]
  - NIGHTMARE [None]
  - SCREAMING [None]
  - SOCIAL PROBLEM [None]
  - SUICIDAL IDEATION [None]
  - VOMITING [None]
  - WEIGHT DECREASED [None]
